FAERS Safety Report 7819639 (Version 34)
Quarter: 2016Q3

REPORT INFORMATION
  Report Type: Spontaneous
  Country: CA (occurrence: CA)
  Receive Date: 20110218
  Receipt Date: 20160913
  Transmission Date: 20161109
  Serious: Yes (Other)
  Sender: FDA-Public Use
  Company Number: CA-ROCHE-GNE314039

PATIENT
  Age: 43 Year
  Sex: Female

DRUGS (24)
  1. XOLAIR [Suspect]
     Active Substance: OMALIZUMAB
     Dosage: 300 MG, Q2W
     Route: 058
     Dates: start: 20091202
  2. XOLAIR [Suspect]
     Active Substance: OMALIZUMAB
     Route: 058
     Dates: start: 20151110
  3. XOLAIR [Suspect]
     Active Substance: OMALIZUMAB
     Dosage: 300 MG, 1/MONTH
     Route: 058
     Dates: start: 20091229
  4. XOLAIR [Suspect]
     Active Substance: OMALIZUMAB
     Dosage: 300 MG, Q4W
     Route: 058
     Dates: start: 20090422
  5. XOLAIR [Suspect]
     Active Substance: OMALIZUMAB
     Route: 058
     Dates: start: 20150915
  6. XOLAIR [Suspect]
     Active Substance: OMALIZUMAB
     Route: 058
     Dates: start: 20160107
  7. XOLAIR [Suspect]
     Active Substance: OMALIZUMAB
     Route: 058
     Dates: start: 20150331
  8. XOLAIR [Suspect]
     Active Substance: OMALIZUMAB
     Route: 058
     Dates: start: 20150428
  9. XOLAIR [Suspect]
     Active Substance: OMALIZUMAB
     Indication: ASTHMA
     Route: 058
     Dates: start: 20080117
  10. XOLAIR [Suspect]
     Active Substance: OMALIZUMAB
     Route: 058
     Dates: start: 20110302
  11. XOLAIR [Suspect]
     Active Substance: OMALIZUMAB
     Route: 058
     Dates: start: 20131112
  12. XOLAIR [Suspect]
     Active Substance: OMALIZUMAB
     Route: 058
     Dates: start: 20160819, end: 20160819
  13. XOLAIR [Suspect]
     Active Substance: OMALIZUMAB
     Route: 058
     Dates: start: 20160405
  14. SINGULAIR [Concomitant]
     Active Substance: MONTELUKAST SODIUM
     Indication: PRODUCT USED FOR UNKNOWN INDICATION
     Dosage: UNK
     Route: 065
  15. XOLAIR [Suspect]
     Active Substance: OMALIZUMAB
     Route: 058
     Dates: start: 20140204
  16. XOLAIR [Suspect]
     Active Substance: OMALIZUMAB
     Route: 058
     Dates: start: 20131016
  17. XOLAIR [Suspect]
     Active Substance: OMALIZUMAB
     Route: 058
     Dates: start: 20140624
  18. SYMBICORT [Concomitant]
     Active Substance: BUDESONIDE\FORMOTEROL FUMARATE DIHYDRATE
     Dosage: UNK, TID
     Route: 065
  19. XOLAIR [Suspect]
     Active Substance: OMALIZUMAB
     Route: 058
     Dates: start: 20130529
  20. XOLAIR [Suspect]
     Active Substance: OMALIZUMAB
     Route: 058
     Dates: start: 20131210
  21. XOLAIR [Suspect]
     Active Substance: OMALIZUMAB
     Route: 058
     Dates: start: 20140107
  22. XOLAIR [Suspect]
     Active Substance: OMALIZUMAB
     Route: 058
     Dates: start: 20160301
  23. XOLAIR [Suspect]
     Active Substance: OMALIZUMAB
     Route: 058
     Dates: start: 20160719
  24. SYMBICORT [Concomitant]
     Active Substance: BUDESONIDE\FORMOTEROL FUMARATE DIHYDRATE
     Indication: PRODUCT USED FOR UNKNOWN INDICATION
     Dosage: UNK, BID
     Route: 065

REACTIONS (34)
  - Respiratory disorder [Unknown]
  - Electrocardiogram QT shortened [Unknown]
  - Road traffic accident [Unknown]
  - Nasopharyngitis [Unknown]
  - Body temperature decreased [Not Recovered/Not Resolved]
  - Foot fracture [Unknown]
  - Fatigue [Unknown]
  - Serum ferritin decreased [Unknown]
  - Cough [Unknown]
  - Aphonia [Unknown]
  - Uterine leiomyoma [Unknown]
  - Blood iron decreased [Unknown]
  - Temperature intolerance [Unknown]
  - Heart rate increased [Unknown]
  - Hypoaesthesia [Unknown]
  - Rhinorrhoea [Unknown]
  - Productive cough [Not Recovered/Not Resolved]
  - Lower respiratory tract infection [Recovering/Resolving]
  - Dyspnoea [Unknown]
  - Malaise [Unknown]
  - Pulmonary fibrosis [Unknown]
  - Weight increased [Unknown]
  - Oedema peripheral [Unknown]
  - Condition aggravated [Unknown]
  - Stress [Unknown]
  - Lung neoplasm [Unknown]
  - Blood pressure increased [Recovered/Resolved]
  - Swelling [Unknown]
  - Upper respiratory tract infection [Recovering/Resolving]
  - Wheezing [Not Recovered/Not Resolved]
  - Influenza [Unknown]
  - Throat irritation [Unknown]
  - Limb mass [Unknown]
  - Asthma [Unknown]

NARRATIVE: CASE EVENT DATE: 20090422
